FAERS Safety Report 4375225-4 (Version None)
Quarter: 2004Q2

REPORT INFORMATION
  Report Type: 
  Country: None (occurrence: None)
  Receive Date: 20040610
  Receipt Date: 20040528
  Transmission Date: 20050107
  Serious: Yes (Hospitalization)
  Sender: FDA-Public Use
  Company Number: PHRM2004FR01967

PATIENT
  Age: 53 Year
  Sex: Male

DRUGS (1)
  1. TAREG [Suspect]
     Dosage: 480 MG, DAILY
     Route: 048
     Dates: start: 20040501

REACTIONS (3)
  - HYPERHIDROSIS [None]
  - MALAISE [None]
  - OVERDOSE [None]
